FAERS Safety Report 5805391-2 (Version None)
Quarter: 2008Q3

REPORT INFORMATION
  Report Type: 
  Country: None (occurrence: None)
  Receive Date: 20080709
  Receipt Date: 20080709
  Transmission Date: 20090109
  Serious: No
  Sender: FDA-Public Use
  Company Number: None

PATIENT

DRUGS (1)
  1. PLAVIX [Suspect]
     Dates: start: 20080609

REACTIONS (2)
  - RASH [None]
  - SKIN EXFOLIATION [None]
